FAERS Safety Report 9624652 (Version 1)
Quarter: 2013Q4

REPORT INFORMATION
  Report Type: Spontaneous
  Country: KR (occurrence: None)
  Receive Date: 20131010
  Receipt Date: 20131010
  Transmission Date: 20140711
  Serious: Yes (Life-Threatening)
  Sender: FDA-Public Use
  Company Number: 1935814

PATIENT
  Age: 54 Year
  Sex: Male

DRUGS (2)
  1. ISOPROTERENOL HYDROCHLORIDE [Suspect]
     Indication: HIGH FREQUENCY ABLATION
     Dosage: /MIN
     Route: 041
  2. FLECAINIDE [Concomitant]

REACTIONS (1)
  - Ventricular fibrillation [None]
